FAERS Safety Report 10105862 (Version 2)
Quarter: 2014Q3

REPORT INFORMATION
  Report Type: Other
  Country: US (occurrence: US)
  Receive Date: 20140424
  Receipt Date: 20140829
  Transmission Date: 20150326
  Serious: Yes (Hospitalization, Other)
  Sender: FDA-Public Use
  Company Number: US-GSKPPD-2014GSK004465

PATIENT
  Age: 59 Year
  Sex: Female

DRUGS (5)
  1. PLAVIX [Concomitant]
     Active Substance: CLOPIDOGREL BISULFATE
  2. VYTORIN [Concomitant]
     Active Substance: EZETIMIBE\SIMVASTATIN
     Dosage: 40/10
  3. AVANDIA [Suspect]
     Active Substance: ROSIGLITAZONE MALEATE
     Indication: DIABETES MELLITUS
     Dosage: DATE OF AVANDIA USE COULD NOT BE CONFIRMED IN RECORDS REVIEWED.
     Route: 048
  4. ASPIRIN. [Concomitant]
     Active Substance: ASPIRIN
  5. COREG [Concomitant]
     Active Substance: CARVEDILOL

REACTIONS (2)
  - Coronary artery disease [Recovered/Resolved]
  - Coronary artery disease [None]

NARRATIVE: CASE EVENT DATE: 20071217
